FAERS Safety Report 8337678 (Version 5)
Quarter: 2012Q4

REPORT INFORMATION
  Report Type: Report from Study
  Country: TR (occurrence: TR)
  Receive Date: 20120116
  Receipt Date: 20121016
  Transmission Date: 20130627
  Serious: Yes (Other)
  Sender: FDA-Public Use
  Company Number: TR-JNJFOC-20120102780

PATIENT
  Age: 37 Year
  Sex: Male
  Weight: 81 kg

DRUGS (5)
  1. PALIPERIDONE PALMITATE [Suspect]
     Indication: SCHIZOPHRENIA
     Route: 030
     Dates: start: 20111209, end: 20120109
  2. PALIPERIDONE PALMITATE [Suspect]
     Indication: SCHIZOPHRENIA
     Route: 030
     Dates: start: 20110928, end: 20111006
  3. PALIPERIDONE PALMITATE [Suspect]
     Indication: SCHIZOPHRENIA
     Route: 030
     Dates: start: 20111008, end: 20111028
  4. PALIPERIDONE ER [Concomitant]
     Indication: SCHIZOPHRENIA
     Route: 048
     Dates: start: 20111006, end: 20111028
  5. PALIPERIDONE ER [Concomitant]
     Indication: SCHIZOPHRENIA
     Route: 048
     Dates: start: 20110928, end: 20111006

REACTIONS (2)
  - Apathy [Recovered/Resolved]
  - Social avoidant behaviour [Recovered/Resolved]
